FAERS Safety Report 17636423 (Version 2)
Quarter: 2020Q2

REPORT INFORMATION
  Report Type: Report from Study
  Country: EG (occurrence: EG)
  Receive Date: 20200407
  Receipt Date: 20200417
  Transmission Date: 20200713
  Serious: Yes (Other)
  Sender: FDA-Public Use
  Company Number: EG-REGENERON PHARMACEUTICALS, INC.-2020-28493

PATIENT

DRUGS (1)
  1. EYLEA [Suspect]
     Active Substance: AFLIBERCEPT
     Indication: AGE-RELATED MACULAR DEGENERATION
     Dosage: LEFT EYE, TOTAL OF 2 DOSES
     Route: 031
     Dates: start: 20191001, end: 20191105

REACTIONS (7)
  - Drug ineffective [Unknown]
  - Visual impairment [Recovering/Resolving]
  - Inappropriate schedule of product administration [Unknown]
  - Injection site pain [Recovering/Resolving]
  - Cataract operation [Unknown]
  - Product use issue [Unknown]
  - Lacrimation increased [Not Recovered/Not Resolved]

NARRATIVE: CASE EVENT DATE: 20191001
